FAERS Safety Report 4746533-X (Version None)
Quarter: 2005Q3

REPORT INFORMATION
  Report Type: 
  Country: None (occurrence: None)
  Receive Date: 20050812
  Receipt Date: 20050809
  Transmission Date: 20060218
  Serious: Yes (Other)
  Sender: FDA-Public Use
  Company Number: GBWYE890810AUG05

PATIENT
  Age: 45 Year
  Sex: Female

DRUGS (4)
  1. TAZOCIN (PIPERACILLIN/TAZOBACTAM, INJECTION) [Suspect]
     Indication: ESCHERICHIA SEPSIS
     Dosage: 4.5 G 3X PER 1 DAY  INTRAVENOUS
     Route: 042
     Dates: start: 20050720, end: 20050722
  2. GENTAMICIN [Concomitant]
  3. DEXAMETHASONE [Concomitant]
  4. HERCEPTIN [Concomitant]

REACTIONS (1)
  - SIMPLE PARTIAL SEIZURES [None]
